FAERS Safety Report 5771519-6 (Version None)
Quarter: 2008Q2

REPORT INFORMATION
  Report Type: 
  Country: None (occurrence: None)
  Receive Date: 20080612
  Receipt Date: 20080612
  Transmission Date: 20081010
  Serious: No
  Sender: FDA-Public Use
  Company Number: None

PATIENT
  Sex: Female

DRUGS (8)
  1. COPAXONE [Suspect]
     Indication: MULTIPLE SCLEROSIS
     Dosage: 20MG QD SQ
     Route: 058
     Dates: start: 20080508, end: 20080520
  2. AMANTADINE HCL [Concomitant]
  3. PROVIGIL [Concomitant]
  4. PROZAC [Concomitant]
  5. XANAX [Concomitant]
  6. SOMA [Concomitant]
  7. MECLAZENE [Concomitant]
  8. PERCOCET [Concomitant]

REACTIONS (23)
  - ABASIA [None]
  - BACK PAIN [None]
  - COUGH [None]
  - CRYING [None]
  - DEPRESSION [None]
  - DYSPNOEA [None]
  - EXERCISE TOLERANCE DECREASED [None]
  - FATIGUE [None]
  - HAEMORRHAGIC DIATHESIS [None]
  - HYPERHIDROSIS [None]
  - IMPAIRED SELF-CARE [None]
  - INJECTION SITE BRUISING [None]
  - INJECTION SITE ERYTHEMA [None]
  - INJECTION SITE IRRITATION [None]
  - INJECTION SITE PAIN [None]
  - INJECTION SITE SWELLING [None]
  - IRRITABILITY [None]
  - LACERATION [None]
  - LUNG NEOPLASM [None]
  - MIGRAINE [None]
  - NAUSEA [None]
  - PAIN [None]
  - PYREXIA [None]
